FAERS Safety Report 5460360-X (Version None)
Quarter: 2007Q3

REPORT INFORMATION
  Report Type: 
  Country: None (occurrence: None)
  Receive Date: 20070402
  Receipt Date: 20061226
  Transmission Date: 20080115
  Serious: Yes (Other)
  Sender: FDA-Public Use
  Company Number: LIT-025-06-US

PATIENT
  Age: 35 Year
  Sex: Male

DRUGS (3)
  1. INTRAVENOUS IMMUNE GLOBULIN (STRENGTH/MFR UNKNOWN) [Suspect]
     Indication: VASCULAR ENCEPHALOPATHY
     Dosage: 2GM/KG (ONE DOSE)
  2. METHYLPREDNISOLONE [Concomitant]
  3. NIMODIPINE (NIMODIPINE) [Concomitant]

REACTIONS (1)
  - CONVULSION [None]
